FAERS Safety Report 5755814-2 (Version None)
Quarter: 2008Q2

REPORT INFORMATION
  Report Type: 
  Country: None (occurrence: None)
  Receive Date: 20080602
  Receipt Date: 20080522
  Transmission Date: 20081010
  Serious: Yes (Other)
  Sender: FDA-Public Use
  Company Number: US-KINGPHARMUSA00001-K200800579

PATIENT

DRUGS (3)
  1. ALTACE [Suspect]
     Indication: CARDIAC FAILURE
     Dosage: 2.5 MG, QD
     Route: 048
  2. BISOPROLOL FUMARATE [Concomitant]
     Dosage: 5 MG, UNK
     Route: 048
  3. SIMVASTATIN [Concomitant]
     Dosage: 40 MG, UNK
     Route: 048

REACTIONS (1)
  - VASCULITIC RASH [None]
